FAERS Safety Report 18179934 (Version 1)
Quarter: 2020Q3

REPORT INFORMATION
  Report Type: Spontaneous
  Country: US (occurrence: US)
  Receive Date: 20200821
  Receipt Date: 20200821
  Transmission Date: 20201103
  Serious: No
  Sender: FDA-Public Use
  Company Number: US-B.I. PHARMACEUTICALS,INC./RIDGEFIELD-2020-US-043250

PATIENT
  Age: 62 Year
  Sex: Male

DRUGS (1)
  1. COMBIVENT [Suspect]
     Active Substance: ALBUTEROL SULFATE\IPRATROPIUM BROMIDE
     Indication: PRODUCT USED FOR UNKNOWN INDICATION
     Dosage: 4 PUFFS DAILY
     Route: 065

REACTIONS (2)
  - COVID-19 [Not Recovered/Not Resolved]
  - Hypopnoea [Not Recovered/Not Resolved]

NARRATIVE: CASE EVENT DATE: 20200810
